FAERS Safety Report 5341871-4 (Version None)
Quarter: 2007Q2

REPORT INFORMATION
  Report Type: 
  Country: None (occurrence: None)
  Receive Date: 20070530
  Receipt Date: 20070521
  Transmission Date: 20071010
  Serious: Yes (Hospitalization)
  Sender: FDA-Public Use
  Company Number: 2007BI011064

PATIENT
  Age: 37 Year
  Sex: Female
  Weight: 99 kg

DRUGS (1)
  1. AVONEX [Suspect]
     Indication: MULTIPLE SCLEROSIS
     Dosage: 30 UG; QW; IM
     Route: 042
     Dates: start: 20041101

REACTIONS (4)
  - BRONCHITIS [None]
  - CYSTITIS NONINFECTIVE [None]
  - GASTROENTERITIS [None]
  - NEURALGIA [None]
